FAERS Safety Report 16099266 (Version 10)
Quarter: 2024Q1

REPORT INFORMATION
  Report Type: Spontaneous
  Country: AT (occurrence: AT)
  Receive Date: 20190321
  Receipt Date: 20240119
  Transmission Date: 20240410
  Serious: Yes (Other)
  Sender: FDA-Public Use
  Company Number: AT-ROCHE-2273718

PATIENT
  Age: 61 Year
  Sex: Female
  Weight: 55 kg

DRUGS (39)
  1. XGEVA [Suspect]
     Active Substance: DENOSUMAB
     Indication: Product used for unknown indication
     Dosage: UNK
     Route: 065
     Dates: start: 20181215
  2. ONTRUZANT [Suspect]
     Active Substance: TRASTUZUMAB-DTTB
     Indication: HER2 positive breast cancer
     Dosage: 336 MILLIGRAM, Q3WK
     Route: 042
     Dates: start: 20181129, end: 20190516
  3. ONTRUZANT [Suspect]
     Active Substance: TRASTUZUMAB-DTTB
     Dosage: 324 MILLIGRAM, Q3WK
     Route: 042
     Dates: start: 20190613, end: 20190704
  4. ONTRUZANT [Suspect]
     Active Substance: TRASTUZUMAB-DTTB
     Dosage: 424 MILLIGRAM, Q3WK
     Route: 042
     Dates: start: 20201109, end: 20201109
  5. ONTRUZANT [Suspect]
     Active Substance: TRASTUZUMAB-DTTB
     Dosage: 318 MILLIGRAM, Q3WK
     Route: 042
     Dates: start: 20201130, end: 20201221
  6. HERCEPTIN [Suspect]
     Active Substance: TRASTUZUMAB
     Indication: HER2 positive breast cancer
     Dosage: 440 MILLIGRAM, Q3WK, MOST RECENT DOSE PRIOR TO THE EVENT: 30/AUG/2018
     Route: 042
     Dates: start: 20180719, end: 20180719
  7. HERCEPTIN [Suspect]
     Active Substance: TRASTUZUMAB
     Dosage: 336 MILLIGRAM, Q3WK
     Route: 042
     Dates: start: 20180830, end: 20181105
  8. HERCEPTIN [Suspect]
     Active Substance: TRASTUZUMAB
     Dosage: 330 MILLIGRAM, Q3WK
     Route: 042
     Dates: start: 20180809, end: 20180809
  9. PERJETA [Suspect]
     Active Substance: PERTUZUMAB
     Indication: HER2 positive breast cancer
     Dosage: 840 MILLIGRAM, Q3WK
     Route: 042
     Dates: start: 20180719, end: 20180719
  10. PERJETA [Suspect]
     Active Substance: PERTUZUMAB
     Dosage: 420 MILLIGRAM, MOST RECENT DOSE PRIOR TO THE EVENT: 09/AUG/2018
     Route: 042
     Dates: start: 20180809, end: 20190704
  11. KADCYLA [Suspect]
     Active Substance: ADO-TRASTUZUMAB EMTANSINE
     Indication: HER2 positive breast cancer
     Dosage: 201.6 MILLIGRAM, Q3WK, MOST RECENT DOSE PRIOR TO AE 29/AUG/2019
     Route: 042
     Dates: start: 20190829, end: 20190829
  12. KADCYLA [Suspect]
     Active Substance: ADO-TRASTUZUMAB EMTANSINE
     Dosage: 143.1 MILLIGRAM, Q3WK
     Route: 042
     Dates: start: 20191003, end: 20201213
  13. FEMARA [Suspect]
     Active Substance: LETROZOLE
     Indication: HER2 positive breast cancer
     Dosage: 2.5 MILLIGRAM, QD, LAST DOSE RECEIVED ON 19/AUG/2019
     Route: 048
     Dates: start: 20190508, end: 20190819
  14. FEMARA [Suspect]
     Active Substance: LETROZOLE
     Dosage: 2.5 MILLIGRAM, QD
     Route: 048
     Dates: start: 20200515, end: 20201022
  15. NAVELBINE [Suspect]
     Active Substance: VINORELBINE TARTRATE
     Indication: HER2 positive breast cancer
     Dosage: 50 MILLIGRAM, 3 TIMES/WK
     Route: 048
     Dates: start: 20180719, end: 20181130
  16. NAVELBINE [Suspect]
     Active Substance: VINORELBINE TARTRATE
     Dosage: 50 MILLIGRAM
     Route: 048
     Dates: start: 20181210, end: 20190206
  17. NAVELBINE [Suspect]
     Active Substance: VINORELBINE TARTRATE
     Dosage: 50 MILLIGRAM
     Route: 048
     Dates: start: 20190613, end: 20190705
  18. AROMASIN [Suspect]
     Active Substance: EXEMESTANE
     Indication: HER2 positive breast cancer
     Dosage: 25 MILLIGRAM, QD, MOST RECENT DOSE PRIOR TO AE 07/MAY/2019
     Route: 048
     Dates: start: 20180719, end: 20190507
  19. DIMETHINDENE [Concomitant]
     Active Substance: DIMETHINDENE
     Dosage: UNK
     Route: 065
     Dates: start: 20180809, end: 20190704
  20. IMODIUM [Concomitant]
     Active Substance: LOPERAMIDE HYDROCHLORIDE
     Indication: Diarrhoea
     Dosage: UNK
     Route: 065
     Dates: start: 20180731
  21. DEXABENE [Concomitant]
     Dosage: UNK
     Route: 065
     Dates: start: 20180809, end: 20190704
  22. POLYETHYLENE GLYCOLS [Concomitant]
     Active Substance: POLYETHYLENE GLYCOLS
     Dosage: UNK
     Route: 065
     Dates: start: 20180719
  23. HYDROMORPHONE HYDROCHLORIDE [Concomitant]
     Active Substance: HYDROMORPHONE HYDROCHLORIDE
     Dosage: UNK
     Route: 065
     Dates: start: 20180727
  24. ZOFRAN [Concomitant]
     Active Substance: ONDANSETRON HYDROCHLORIDE
     Dosage: UNK
     Route: 065
     Dates: start: 20180920, end: 20190615
  25. ONDANSETRON HYDROCHLORIDE [Concomitant]
     Active Substance: ONDANSETRON HYDROCHLORIDE
     Dosage: UNK
     Route: 065
     Dates: start: 20180709, end: 20190206
  26. RANITIDINE HYDROCHLORIDE [Concomitant]
     Active Substance: RANITIDINE HYDROCHLORIDE
     Dosage: UNK
     Route: 065
     Dates: start: 20180809, end: 20190704
  27. ESOMEPRAZOLE [Concomitant]
     Active Substance: ESOMEPRAZOLE
     Indication: Dyspepsia
     Dosage: UNK
     Route: 065
     Dates: start: 20180727, end: 20190615
  28. ESOMEPRAZOLE [Concomitant]
     Active Substance: ESOMEPRAZOLE
     Indication: Nausea
  29. EUTHYROX [Concomitant]
     Active Substance: LEVOTHYROXINE SODIUM
     Dosage: UNK
     Route: 065
  30. Novalgin [Concomitant]
     Dosage: UNK
     Route: 065
     Dates: start: 20180727
  31. VITAMINS WITH MINERALS [Concomitant]
     Active Substance: MINERALS\VITAMINS
     Dosage: UNK
     Route: 065
     Dates: start: 20181205
  32. KYTRIL [Concomitant]
     Active Substance: GRANISETRON HYDROCHLORIDE
     Dosage: UNK
     Dates: start: 20190829
  33. AMOXICILLIN\CLAVULANATE POTASSIUM [Concomitant]
     Active Substance: AMOXICILLIN\CLAVULANATE POTASSIUM
     Dosage: UNK
     Dates: start: 20191215, end: 20191215
  34. MAGNESIUM SUCCINATE [Concomitant]
     Dosage: UNK
     Dates: start: 20190819
  35. DEXAMETHASONE [Concomitant]
     Active Substance: DEXAMETHASONE
     Indication: Vertigo
     Dosage: UNK
     Dates: start: 20191114
  36. DEXAMETHASONE [Concomitant]
     Active Substance: DEXAMETHASONE
     Dosage: UNK
     Dates: start: 20190829
  37. Vertirosan [Concomitant]
     Indication: Vertigo
     Dosage: UNK
     Dates: start: 20191218
  38. ORNITHINE ASPARTATE [Concomitant]
     Active Substance: ORNITHINE ASPARTATE
  39. HALDOL [Concomitant]
     Active Substance: HALOPERIDOL

REACTIONS (6)
  - Neuropathy peripheral [Unknown]
  - Breast pain [Recovered/Resolved]
  - Conjunctivitis [Recovered/Resolved]
  - Conjunctivitis [Recovered/Resolved]
  - Muscle spasms [Not Recovered/Not Resolved]
  - Headache [Recovered/Resolved]

NARRATIVE: CASE EVENT DATE: 20190131
